FAERS Safety Report 8438572-2 (Version None)
Quarter: 2012Q2

REPORT INFORMATION
  Report Type: 
  Country: None (occurrence: None)
  Receive Date: 20120615
  Receipt Date: 20120612
  Transmission Date: 20120825
  Serious: No
  Sender: FDA-Public Use
  Company Number: US-PFIZER INC-2012141902

PATIENT
  Sex: Female
  Weight: 61.224 kg

DRUGS (1)
  1. CHILDREN'S ADVIL [Suspect]
     Indication: PAIN
     Dosage: UNK
     Route: 048
     Dates: start: 20120501

REACTIONS (2)
  - PRURITUS [None]
  - ERYTHEMA [None]
